FAERS Safety Report 6686149-1 (Version None)
Quarter: 2010Q2

REPORT INFORMATION
  Report Type: 
  Country: None (occurrence: None)
  Receive Date: 20100419
  Receipt Date: 20100407
  Transmission Date: 20101027
  Serious: Yes (Other)
  Sender: FDA-Public Use
  Company Number: PHEH2009US10081

PATIENT
  Age: 50 Year
  Sex: Female

DRUGS (2)
  1. TEGRETOL-XR [Suspect]
     Indication: EPILEPSY
     Dosage: 100 MG, UNK
     Dates: start: 19990101
  2. TEGRETOL-XR [Suspect]
     Dosage: 200 MG

REACTIONS (8)
  - CONVULSION [None]
  - EYE PAIN [None]
  - FATIGUE [None]
  - HEADACHE [None]
  - LOSS OF CONSCIOUSNESS [None]
  - PAIN IN EXTREMITY [None]
  - SWELLING FACE [None]
  - WEIGHT INCREASED [None]
